FAERS Safety Report 7027027-8 (Version None)
Quarter: 2010Q4

REPORT INFORMATION
  Report Type: 
  Country: None (occurrence: None)
  Receive Date: 20101004
  Receipt Date: 20100924
  Transmission Date: 20110411
  Serious: Yes (Other)
  Sender: FDA-Public Use
  Company Number: US-PURDUE-USA-2010-0047493

PATIENT
  Sex: Male

DRUGS (3)
  1. OXYCODONE HCL [Suspect]
     Indication: CONGENITAL CYSTIC KIDNEY DISEASE
     Dosage: 40 MG, TID
     Dates: start: 20090101
  2. OXYCODONE HCL [Suspect]
     Indication: BACK INJURY
  3. OXYCODONE HCL [Suspect]
     Indication: NECK INJURY

REACTIONS (4)
  - CARDIAC FAILURE CONGESTIVE [None]
  - MALAISE [None]
  - RENAL FAILURE [None]
  - VOMITING [None]
